FAERS Safety Report 8585625-4 (Version None)
Quarter: 2012Q3

REPORT INFORMATION
  Report Type: 
  Country: None (occurrence: None)
  Receive Date: 20120810
  Receipt Date: 20120807
  Transmission Date: 20120928
  Serious: Yes (Hospitalization, Other)
  Sender: FDA-Public Use
  Company Number: PHHO2006BR21799

PATIENT
  Sex: Female
  Weight: 85 kg

DRUGS (9)
  1. ATROVENT [Concomitant]
     Indication: ASTHMA
  2. ALBUTEROL [Concomitant]
     Indication: ASTHMA
  3. DIOVAN HCT [Suspect]
     Indication: HYPERTENSION
     Dosage: 1 DF (80 MG VALS /12.5 MG HYDRO), PER DAY
     Route: 048
     Dates: start: 20020101
  4. GLUCOVANCE [Concomitant]
     Indication: DIABETES MELLITUS
     Dosage: 1 DF, BID
     Route: 048
     Dates: start: 20060101
  5. METFORMIN HYDROCHLORIDE [Concomitant]
     Indication: DIABETES MELLITUS
     Dosage: 3 DF, DAILY
     Route: 048
     Dates: start: 20030101
  6. DIOVAN HCT [Suspect]
     Dosage: 1 DF (160 MG VALSA AND 25 MG HYDRO), PER DAY
  7. GLIMEPIRIDE [Concomitant]
     Indication: DIABETES MELLITUS
     Dosage: 2 DF, DAILY
     Route: 048
  8. BECLOMETHASONE DIPROPIONATE [Suspect]
     Indication: ASTHMA
  9. ALPRAZOLAM [Concomitant]
     Indication: PANIC DISORDER
     Dosage: 2 DF, DAILY
     Route: 048

REACTIONS (14)
  - GLYCOSYLATED HAEMOGLOBIN INCREASED [None]
  - TRANSAMINASES INCREASED [None]
  - OEDEMA PERIPHERAL [None]
  - DRUG ADMINISTRATION ERROR [None]
  - DIABETES MELLITUS [None]
  - HYPERGLYCAEMIA [None]
  - HEPATOMEGALY [None]
  - ABDOMINAL PAIN UPPER [None]
  - HYPOTENSION [None]
  - DRUG INEFFECTIVE [None]
  - NERVOUSNESS [None]
  - MENISCUS LESION [None]
  - BLOOD PRESSURE INCREASED [None]
  - DEVICE RELATED INFECTION [None]
